FAERS Safety Report 4738582-2 (Version None)
Quarter: 2005Q3

REPORT INFORMATION
  Report Type: 
  Country: None (occurrence: None)
  Receive Date: 20050803
  Receipt Date: 20050726
  Transmission Date: 20060218
  Serious: Yes (Hospitalization, Other)
  Sender: FDA-Public Use
  Company Number: 2005106812

PATIENT
  Age: 47 Year
  Sex: Male

DRUGS (11)
  1. LIPITOR [Suspect]
     Indication: BLOOD CHOLESTEROL INCREASED
     Dosage: 20 MG (20 MG, 1 IN 1 D) ORAL
     Route: 048
     Dates: start: 19930101
  2. CELEBREX [Suspect]
     Indication: SHOULDER PAIN
     Dosage: (200 MG, AS NECESSARY) ORAL
     Route: 048
     Dates: start: 20040101
  3. GLUCOTROL [Suspect]
     Indication: DIABETES MELLITUS
     Dosage: ORAL
     Route: 048
     Dates: start: 19930101
  4. NITROSTAT [Suspect]
     Indication: CHEST PAIN
     Dosage: (0.4 MG)
     Dates: start: 19930101
  5. ZYRTEC [Suspect]
     Indication: ILL-DEFINED DISORDER
     Dosage: ORAL
     Route: 048
  6. KLOR-CON [Concomitant]
  7. ENALAPRIL [Concomitant]
  8. LASIX [Concomitant]
  9. REGLAN [Concomitant]
  10. ASPIRIN [Concomitant]
  11. COREG [Concomitant]

REACTIONS (8)
  - ARTHRITIS [None]
  - CARDIAC FAILURE CONGESTIVE [None]
  - GASTRIC ULCER [None]
  - HEADACHE [None]
  - HIATUS HERNIA [None]
  - HYPERTENSION [None]
  - MYOCARDIAL INFARCTION [None]
  - SHOULDER PAIN [None]
